FAERS Safety Report 16184867 (Version 2)
Quarter: 2019Q2

REPORT INFORMATION
  Report Type: Spontaneous
  Country: US (occurrence: US)
  Receive Date: 20190411
  Receipt Date: 20190416
  Transmission Date: 20190711
  Serious: No
  Sender: FDA-Public Use
  Company Number: US-PFIZER INC-2019153378

PATIENT
  Age: 54 Year
  Sex: Female
  Weight: 86.17 kg

DRUGS (2)
  1. GABAPENTIN. [Suspect]
     Active Substance: GABAPENTIN
     Indication: FIBROMYALGIA
     Dosage: 300 MG, 3X/DAY (ONE TO TWO CAPSULES)
     Route: 048
     Dates: start: 201901
  2. GABAPENTIN. [Suspect]
     Active Substance: GABAPENTIN
     Indication: FIBROMYALGIA
     Dosage: UNK UNK, 3X/DAY (ONE HALF TO ONE TABLET)
     Route: 048
     Dates: start: 201902

REACTIONS (8)
  - Hyperchlorhydria [Recovered/Resolved]
  - Abdominal pain [Recovered/Resolved]
  - Feeding disorder [Recovered/Resolved]
  - Intentional product misuse [Unknown]
  - Abdominal pain upper [Unknown]
  - Hypoaesthesia [Unknown]
  - Suspected product tampering [Unknown]
  - Product use in unapproved indication [Unknown]

NARRATIVE: CASE EVENT DATE: 2019
